FAERS Safety Report 9287284 (Version 1)
Quarter: 2013Q2

REPORT INFORMATION
  Report Type: Spontaneous
  Country: US (occurrence: US)
  Receive Date: 20130513
  Receipt Date: 20130513
  Transmission Date: 20140414
  Serious: Yes (Hospitalization)
  Sender: FDA-Public Use
  Company Number: US-B.I. PHARMACEUTICALS,INC./RIDGEFIELD-2013-BI-12396BP

PATIENT
  Age: 61 Year
  Sex: Male
  Weight: 74 kg

DRUGS (3)
  1. SPIRIVA [Suspect]
     Indication: CHRONIC OBSTRUCTIVE PULMONARY DISEASE
     Dosage: 18 MCG
     Route: 055
     Dates: start: 2010
  2. COMBIVENT [Suspect]
     Indication: CHRONIC OBSTRUCTIVE PULMONARY DISEASE
     Dosage: STRENGTH: 18 MCG / 103 MCG; DAILY DOSE: 144 MCG / 824 MCG
     Route: 055
     Dates: start: 201302
  3. PROAIR [Concomitant]
     Indication: DYSPNOEA
     Dosage: 12 PUF
     Route: 055
     Dates: start: 2009

REACTIONS (4)
  - Small cell lung cancer [Not Recovered/Not Resolved]
  - Dyspnoea [Recovered/Resolved]
  - Confusional state [Not Recovered/Not Resolved]
  - Incorrect route of drug administration [Recovered/Resolved]
